FAERS Safety Report 8013717-7 (Version None)
Quarter: 2011Q4

REPORT INFORMATION
  Report Type: 
  Country: None (occurrence: None)
  Receive Date: 20111229
  Receipt Date: 20111216
  Transmission Date: 20120403
  Serious: Yes (Hospitalization, Other)
  Sender: FDA-Public Use
  Company Number: US-ELI_LILLY_AND_COMPANY-US201112005834

PATIENT
  Sex: Female

DRUGS (1)
  1. FORTEO [Suspect]
     Indication: OSTEOPOROSIS
     Dosage: 20 UG, QD

REACTIONS (5)
  - EATING DISORDER [None]
  - HEART RATE ABNORMAL [None]
  - IMPAIRED SELF-CARE [None]
  - DEMENTIA [None]
  - BLOOD PRESSURE ABNORMAL [None]
